FAERS Safety Report 8383173-8 (Version None)
Quarter: 2012Q2

REPORT INFORMATION
  Report Type: 
  Country: None (occurrence: None)
  Receive Date: 20120524
  Receipt Date: 20120510
  Transmission Date: 20120825
  Serious: Yes (Hospitalization)
  Sender: FDA-Public Use
  Company Number: ES-JNJFOC-20101204712

PATIENT
  Sex: Female

DRUGS (3)
  1. REMICADE [Suspect]
     Indication: CROHN'S DISEASE
     Route: 042
  2. REMICADE [Suspect]
     Route: 042
     Dates: start: 20090423
  3. ADALIMUMAB [Concomitant]
     Indication: CROHN'S DISEASE
     Dates: start: 20090611

REACTIONS (3)
  - CYSTITIS KLEBSIELLA [None]
  - MATERNAL EXPOSURE BEFORE PREGNANCY [None]
  - CAESAREAN SECTION [None]
